FAERS Safety Report 4586742-6 (Version None)
Quarter: 2005Q1

REPORT INFORMATION
  Report Type: 
  Country: None (occurrence: None)
  Receive Date: 20050214
  Receipt Date: 20050204
  Transmission Date: 20050727
  Serious: Yes (Hospitalization)
  Sender: FDA-Public Use
  Company Number: 2004CG01753

PATIENT
  Age: 84 Year
  Sex: Female

DRUGS (5)
  1. TENORMIN [Suspect]
     Dosage: 50 MG DAILY PO
     Route: 048
     Dates: start: 20010101, end: 20040728
  2. TRIATEC [Suspect]
     Dosage: 2.5 MG DAILY PO
     Route: 048
     Dates: start: 20010101, end: 20040728
  3. VASTAREL [Concomitant]
  4. LIPANTHYL [Concomitant]
  5. BROMAZEPAM [Concomitant]

REACTIONS (2)
  - LUNG DISORDER [None]
  - SYSTEMIC LUPUS ERYTHEMATOSUS [None]
